FAERS Safety Report 7714137-2 (Version None)
Quarter: 2011Q3

REPORT INFORMATION
  Report Type: 
  Country: None (occurrence: None)
  Receive Date: 20110829
  Receipt Date: 20110819
  Transmission Date: 20111222
  Serious: Yes (Hospitalization, Other)
  Sender: FDA-Public Use
  Company Number: US-BIOGENIDEC-2011BI007040

PATIENT
  Age: 21 Year
  Sex: Female

DRUGS (3)
  1. TYSABRI [Suspect]
     Indication: MULTIPLE SCLEROSIS
     Route: 042
     Dates: start: 20080826, end: 20100803
  2. PRENATAL VITAMINS [Concomitant]
  3. MACROBID [Concomitant]
     Dates: start: 20110113, end: 20110118

REACTIONS (2)
  - ARRESTED LABOUR [None]
  - PREGNANCY [None]
